FAERS Safety Report 5116024-5 (Version None)
Quarter: 2006Q3

REPORT INFORMATION
  Report Type: 
  Country: None (occurrence: None)
  Receive Date: 20060927
  Receipt Date: 20060223
  Transmission Date: 20061208
  Serious: No
  Sender: FDA-Public Use
  Company Number: US-BRISTOL-MYERS SQUIBB COMPANY-13294913

PATIENT
  Age: 70 Year
  Sex: Female

DRUGS (1)
  1. DEFINITY [Suspect]
     Indication: CARDIOVASCULAR EVALUATION

REACTIONS (3)
  - BACK PAIN [None]
  - FEELING HOT [None]
  - FLUSHING [None]
